FAERS Safety Report 9264759 (Version 1)
Quarter: 2013Q2

REPORT INFORMATION
  Report Type: Report from Study
  Country: MX (occurrence: MX)
  Receive Date: 20130501
  Receipt Date: 20130501
  Transmission Date: 20140414
  Serious: Yes (Hospitalization)
  Sender: FDA-Public Use
  Company Number: MX-ROCHE-1219822

PATIENT
  Sex: Female
  Weight: 98 kg

DRUGS (3)
  1. HERCEPTIN [Suspect]
     Indication: BREAST CANCER
     Route: 042
     Dates: start: 20120807
  2. SALBUTAMOL [Suspect]
     Indication: ASTHMA
     Route: 065
  3. EXEMESTANE [Concomitant]
     Indication: BREAST CANCER
     Route: 048
     Dates: start: 20130409

REACTIONS (6)
  - Pneumonia [Recovered/Resolved]
  - Cough [Not Recovered/Not Resolved]
  - Ear disorder [Not Recovered/Not Resolved]
  - Weight increased [Not Recovered/Not Resolved]
  - Oedema [Not Recovered/Not Resolved]
  - Chills [Recovered/Resolved]
